FAERS Safety Report 5450268-8 (Version None)
Quarter: 2007Q3

REPORT INFORMATION
  Report Type: 
  Country: None (occurrence: None)
  Receive Date: 20070912
  Receipt Date: 20070904
  Transmission Date: 20080115
  Serious: Yes (Hospitalization)
  Sender: FDA-Public Use
  Company Number: US-SANOFI-SYNTHELABO-A03200705461

PATIENT
  Sex: Male
  Weight: 74.83 kg

DRUGS (6)
  1. PLAVIX [Suspect]
     Indication: CORONARY ARTERIAL STENT INSERTION
     Route: 048
     Dates: start: 20040101
  2. LISINOPRIL [Concomitant]
     Dosage: 5 MG DAILY FOR 3 YEARS
     Route: 048
  3. LIPITOR [Concomitant]
     Dosage: 20 MG DAILY FOR 3 YEARS
     Route: 048
  4. LAMICTAL [Suspect]
     Indication: DRUG USE FOR UNKNOWN INDICATION
     Dosage: 100 MG TWICE DAILY FOR 1 TO 1.5 YEARS
     Route: 048
  5. TYLENOL (CAPLET) [Concomitant]
     Dosage: UNK
     Route: 065
  6. LUMIGAN [Concomitant]
     Dosage: 1 DROP BOTH EYES AT BEDTIME FOR 1 TO 1.5 YEARS
     Route: 047

REACTIONS (4)
  - CATARACT [None]
  - DIVERTICULUM [None]
  - RECTAL HAEMORRHAGE [None]
  - VISION BLURRED [None]
